FAERS Safety Report 9620176 (Version 2)
Quarter: 2013Q4

REPORT INFORMATION
  Report Type: Spontaneous
  Country: US (occurrence: US)
  Receive Date: 20131014
  Receipt Date: 20131209
  Transmission Date: 20140711
  Serious: Yes (Other)
  Sender: FDA-Public Use
  Company Number: US-RB-059340-13

PATIENT
  Age: 33 Year
  Sex: Female

DRUGS (1)
  1. SUBOXONE FILM [Suspect]
     Indication: DRUG DEPENDENCE
     Dosage: SUBOXONE FILM
     Route: 060
     Dates: start: 20130305

REACTIONS (5)
  - Idiopathic generalised epilepsy [Unknown]
  - Convulsion [Unknown]
  - Disorientation [Unknown]
  - Confusional state [Unknown]
  - Impaired driving ability [Unknown]
